FAERS Safety Report 8581697-1 (Version None)
Quarter: 2012Q3

REPORT INFORMATION
  Report Type: 
  Country: None (occurrence: None)
  Receive Date: 20120809
  Receipt Date: 20120801
  Transmission Date: 20120928
  Serious: Yes (Hospitalization)
  Sender: FDA-Public Use
  Company Number: US-BAYER-2012-079297

PATIENT
  Age: 29 Year
  Sex: Female
  Weight: 124 kg

DRUGS (9)
  1. MYLANTA [ALUMINIUM HYDROXIDE,MAGNESIUM HYDROXIDE,SIMETICONE] [Concomitant]
     Dosage: 30 ML, UNK
     Route: 048
     Dates: start: 20081030
  2. AZITHROMYCIN [Concomitant]
     Dosage: 250 MG, UNK
     Dates: start: 20080917
  3. CARAFATE [Concomitant]
     Dosage: 1 G, UNK
     Route: 048
     Dates: start: 20081030
  4. METRONIDAZOLE [Concomitant]
     Dosage: 500 MG, UNK
     Dates: start: 20080805
  5. LIDOCAINE HCL VISCOUS [Concomitant]
     Dosage: 15 ML, UNK
     Route: 048
     Dates: start: 20081030
  6. ASPIRIN [Concomitant]
  7. DOXYCYCLINE HCL [Concomitant]
     Dosage: 100 MG, UNK
     Dates: start: 20080923
  8. YAZ [Suspect]
     Dosage: UNK
     Dates: start: 20080107, end: 20081031
  9. DONNATAL [Concomitant]
     Dosage: 5 MILLILITRES
     Route: 048
     Dates: start: 20081030

REACTIONS (2)
  - MESENTERIC VEIN THROMBOSIS [None]
  - DEEP VEIN THROMBOSIS [None]
